FAERS Safety Report 9700217 (Version 1)
Quarter: 2013Q4

REPORT INFORMATION
  Report Type: Spontaneous
  Country: GB (occurrence: GB)
  Receive Date: 20131121
  Receipt Date: 20131121
  Transmission Date: 20140711
  Serious: Yes (Hospitalization, Disabling, Other)
  Sender: FDA-Public Use
  Company Number: GB-ASTRAZENECA-2013SE83784

PATIENT
  Age: 60 Year
  Sex: Female

DRUGS (14)
  1. MEROPENEM [Suspect]
     Indication: VAGINAL ABSCESS
     Route: 042
     Dates: start: 20131026, end: 20131028
  2. OMEPRAZOLE [Concomitant]
     Route: 048
  3. ADCAL-D3 [Concomitant]
  4. ALENDRONATE [Concomitant]
  5. CHLORPHENAMINE [Concomitant]
  6. CIMETIDINE [Concomitant]
  7. DARBEPOETIN ALFA [Concomitant]
  8. FLUCONAZOLE [Concomitant]
  9. LINEZOLID [Concomitant]
  10. METRONIDAZOLE [Concomitant]
  11. PREGABALIN [Concomitant]
  12. RANITIDINE [Concomitant]
  13. TOLTERODINE [Concomitant]
  14. VANCOMYCIN [Concomitant]

REACTIONS (2)
  - Quality of life decreased [Not Recovered/Not Resolved]
  - Rash generalised [Not Recovered/Not Resolved]
